FAERS Safety Report 5109549-X (Version None)
Quarter: 2006Q3

REPORT INFORMATION
  Report Type: 
  Country: None (occurrence: None)
  Receive Date: 20060918
  Receipt Date: 20060831
  Transmission Date: 20061208
  Serious: Yes (Other)
  Sender: FDA-Public Use
  Company Number: DE200609000520

PATIENT
  Age: 45 Year
  Sex: Female

DRUGS (2)
  1. CYMBALTA [Suspect]
     Indication: DEPRESSION
     Dosage: 60 MG, DAILY (1/D), ORAL; 120 MG, DAILY (1/D), ORAL
     Route: 048
     Dates: start: 20060101
  2. CYMBALTA [Suspect]
     Indication: DEPRESSION
     Dosage: 60 MG, DAILY (1/D), ORAL; 120 MG, DAILY (1/D), ORAL
     Route: 048
     Dates: start: 20060101

REACTIONS (3)
  - HOT FLUSH [None]
  - METRORRHAGIA [None]
  - POLYMENORRHOEA [None]
